FAERS Safety Report 7266941 (Version 4)
Quarter: 2014Q1

REPORT INFORMATION
  Report Type: Spontaneous
  Country: GB (occurrence: GB)
  Receive Date: 20100201
  Receipt Date: 20140122
  Transmission Date: 20141002
  Serious: Yes (Hospitalization, Other)
  Sender: FDA-Public Use
  Company Number: PHHY2010GB04040

PATIENT
  Sex: Male

DRUGS (9)
  1. CLOZARIL [Suspect]
     Indication: SCHIZOPHRENIA
     Dosage: UNK
     Route: 048
     Dates: start: 19980216
  2. CLOZARIL [Suspect]
     Dosage: 500 MG, UNK
     Route: 048
     Dates: start: 2002, end: 2010
  3. RISPERIDONE [Concomitant]
     Dosage: 1 MG, BID
     Dates: start: 2010
  4. RISPERIDONE [Concomitant]
     Dosage: 8 MG, UNK
     Dates: start: 201011
  5. RISPERIDONE [Concomitant]
     Dosage: 5.5 MG, QD
  6. HALOPERIDOL                             /CAN/ [Concomitant]
     Dosage: UNK
  7. DULOXETINE [Concomitant]
     Dosage: 30 MG, UNK
     Dates: start: 2011
  8. AMITRIPTYLINE [Concomitant]
     Dosage: UNK UKN, UNK
  9. ARIPIPRAZOLE [Concomitant]

REACTIONS (14)
  - Lower limb fracture [Unknown]
  - Localised infection [Unknown]
  - Surgical failure [Unknown]
  - Dehydration [Unknown]
  - General physical health deterioration [Unknown]
  - Malaise [Unknown]
  - Neutropenic sepsis [Recovering/Resolving]
  - White blood cell count decreased [Unknown]
  - Neutrophil count decreased [Unknown]
  - Psychotic disorder [Unknown]
  - Renal failure [Unknown]
  - Renal impairment [Unknown]
  - Platelet count decreased [Unknown]
  - Glomerular filtration rate decreased [Unknown]
